FAERS Safety Report 6579329-7 (Version None)
Quarter: 2010Q1

REPORT INFORMATION
  Report Type: 
  Country: None (occurrence: None)
  Receive Date: 20100209
  Receipt Date: 20100209
  Transmission Date: 20100710
  Serious: No
  Sender: FDA-Public Use
  Company Number: None

PATIENT
  Age: 57 Year
  Sex: Male
  Weight: 90.7194 kg

DRUGS (1)
  1. ZI-CAM COLD REMEDY NASAL GEL NONE LISTED MATRIX INITIATIVES, INC [Suspect]
     Indication: NASOPHARYNGITIS
     Dosage: FIRST SIGN OF COLD NASAL ONE TIME USE ONLY
     Route: 045
     Dates: start: 20081115, end: 20081115

REACTIONS (4)
  - ANOSMIA [None]
  - DYSGEUSIA [None]
  - DYSPNOEA [None]
  - NASAL DISCOMFORT [None]
